FAERS Safety Report 5025972-6 (Version None)
Quarter: 2006Q2

REPORT INFORMATION
  Report Type: 
  Country: None (occurrence: None)
  Receive Date: 20060608
  Receipt Date: 20060517
  Transmission Date: 20061013
  Serious: Yes (Disabling)
  Sender: FDA-Public Use
  Company Number: FRPFM-E-20060051-V001

PATIENT
  Age: 48 Year
  Sex: Male

DRUGS (2)
  1. NAVELBINE [Suspect]
     Indication: METASTASES TO LUNG
     Dosage: 3/30 DAYS INTRAVENOUS
     Route: 042
     Dates: start: 20060306, end: 20060321
  2. - CISPLATIN - CISPLATIN -S [Suspect]
     Indication: METASTASES TO LUNG
     Dosage: 3/30 DAYS INTRAVENOUS
     Route: 042
     Dates: start: 20060306, end: 20060321

REACTIONS (1)
  - DEAFNESS [None]
